FAERS Safety Report 10679861 (Version 3)
Quarter: 2015Q2

REPORT INFORMATION
  Report Type: Spontaneous
  Country: US (occurrence: US)
  Receive Date: 20141229
  Receipt Date: 20150417
  Transmission Date: 20150821
  Serious: No
  Sender: FDA-Public Use
  Company Number: US-PFIZER INC-2014358734

PATIENT
  Age: 69 Year
  Sex: Male
  Weight: 86 kg

DRUGS (15)
  1. VENLAFAXINE HCL [Suspect]
     Active Substance: VENLAFAXINE HYDROCHLORIDE
     Indication: ANXIETY
  2. BUPROPION [Concomitant]
     Active Substance: BUPROPION
     Dosage: 100 MG, 3X/DAY
     Route: 048
     Dates: start: 201104
  3. LATANOPROST. [Concomitant]
     Active Substance: LATANOPROST
     Dosage: ONE DROP IN EACH EYE EACH EVENING
     Route: 047
     Dates: start: 201204
  4. BENADRYL [Concomitant]
     Active Substance: DIPHENHYDRAMINE HYDROCHLORIDE
     Indication: NASAL CONGESTION
     Dosage: 10 MG, AS NEEDED
     Route: 048
  5. CLONAZEPAM. [Concomitant]
     Active Substance: CLONAZEPAM
     Dosage: 0.5 MG, 2X/DAY
     Route: 048
     Dates: start: 201104
  6. ASPIRIN. [Concomitant]
     Active Substance: ASPIRIN
     Dosage: 81 MG, DAILY
     Route: 048
     Dates: start: 201204
  7. VITAMIN D3 [Concomitant]
     Active Substance: CHOLECALCIFEROL
     Dosage: 2000 IU, DAILY
     Route: 048
     Dates: start: 201305
  8. TRAMADOL HYDROCHLORIDE. [Concomitant]
     Active Substance: TRAMADOL HYDROCHLORIDE
     Indication: PAIN
     Dosage: 50 MG, AS NEEDED
     Route: 048
  9. ATENOLOL. [Concomitant]
     Active Substance: ATENOLOL
     Dosage: 25 MG, DAILY
     Route: 048
     Dates: start: 201103
  10. RANITIDINE [Concomitant]
     Active Substance: RANITIDINE\RANITIDINE HYDROCHLORIDE
     Dosage: 150 MG, 2X/DAY
     Route: 048
     Dates: start: 201404
  11. ACETAMINOPHEN/ASPIRIN/CAFFEINE [Concomitant]
     Indication: ARTHRALGIA
     Dosage: [ACETAMINOPHEN 250MG, ASPIRIN 250MG AND CAFFEINE 65MG] AS NEEDED
     Route: 048
  12. PRAMIPEXOLE [Concomitant]
     Active Substance: PRAMIPEXOLE
     Indication: RESTLESS LEGS SYNDROME
     Dosage: 0.125 MG, DAILY
     Route: 048
     Dates: start: 20140512
  13. VENLAFAXINE HCL [Suspect]
     Active Substance: VENLAFAXINE HYDROCHLORIDE
     Indication: DEPRESSION
     Dosage: 150 MG, 1X/DAY
     Route: 048
     Dates: start: 20111123, end: 20141210
  14. PRAVASTATIN SODIUM. [Concomitant]
     Active Substance: PRAVASTATIN SODIUM
     Dosage: 40 MG, DAILY (EACH EVENING)
     Route: 048
     Dates: start: 201209
  15. ZYRTEC [Concomitant]
     Active Substance: CETIRIZINE HYDROCHLORIDE
     Dosage: 10 MG, DAILY
     Route: 048
     Dates: start: 201409

REACTIONS (4)
  - Cataract [Unknown]
  - Erectile dysfunction [Recovered/Resolved]
  - Sexual dysfunction [Recovered/Resolved]
  - Paraesthesia [Unknown]
